FAERS Safety Report 5379293-2 (Version None)
Quarter: 2007Q3

REPORT INFORMATION
  Report Type: 
  Country: None (occurrence: None)
  Receive Date: 20070705
  Receipt Date: 20070627
  Transmission Date: 20080115
  Serious: Yes (Death)
  Sender: FDA-Public Use
  Company Number: BR-SHR-BR-2007-024034

PATIENT
  Age: 36 Year
  Sex: Male

DRUGS (1)
  1. BETASERON [Suspect]
     Dosage: UNK MIU, UNK
     Route: 058
     Dates: end: 20060601

REACTIONS (1)
  - CARDIO-RESPIRATORY ARREST [None]
